FAERS Safety Report 10726678 (Version 3)
Quarter: 2015Q1

REPORT INFORMATION
  Report Type: Spontaneous
  Country: US (occurrence: US)
  Receive Date: 20150121
  Receipt Date: 20150210
  Transmission Date: 20150721
  Serious: Yes (Other)
  Sender: FDA-Public Use
  Company Number: US-SHIRE-US201500304

PATIENT
  Sex: Female

DRUGS (2)
  1. ASACOL [Suspect]
     Active Substance: MESALAMINE
     Indication: PRODUCT USED FOR UNKNOWN INDICATION
     Dosage: UNK, UNKNOWN
     Route: 065
  2. LIALDA [Suspect]
     Active Substance: MESALAMINE
     Indication: COLITIS ULCERATIVE
     Dosage: UNK, UNKNOWN
     Route: 048

REACTIONS (8)
  - Metabolic disorder [Unknown]
  - Arthralgia [Unknown]
  - Feeling abnormal [Unknown]
  - Myalgia [Unknown]
  - Toxicity to various agents [Unknown]
  - Apparent death [Unknown]
  - Malnutrition [Unknown]
  - Colitis ulcerative [Unknown]
